FAERS Safety Report 6826747-5 (Version None)
Quarter: 2010Q3

REPORT INFORMATION
  Report Type: 
  Country: None (occurrence: None)
  Receive Date: 20100709
  Receipt Date: 20100628
  Transmission Date: 20110219
  Serious: Yes (Other)
  Sender: FDA-Public Use
  Company Number: BR-PFIZER INC-2010080728

PATIENT
  Age: 27 Year
  Sex: Male

DRUGS (6)
  1. GEODON [Suspect]
     Indication: OBSESSIVE-COMPULSIVE DISORDER
     Dosage: 40 MG, 3X/DAY
     Route: 048
     Dates: start: 20030101, end: 20070101
  2. GEODON [Suspect]
     Dosage: 80 MG, 1X/DAY, AT NIGHT
     Route: 048
     Dates: start: 20070101
  3. GEODON [Suspect]
     Dosage: 80 MG, 2X/DAY
     Route: 048
  4. RIVOTRIL [Suspect]
     Indication: SLEEP DISORDER
     Dosage: 4 MG, 1X/DAY
     Dates: start: 20080101
  5. NEULEPTIL [Concomitant]
     Dosage: UNK
  6. TEGRETOL [Concomitant]
     Dosage: 90 MG, UNK
     Dates: start: 20070101

REACTIONS (7)
  - DRUG INEFFECTIVE [None]
  - HEADACHE [None]
  - HYPERSOMNIA [None]
  - INCORRECT DOSE ADMINISTERED [None]
  - INSOMNIA [None]
  - MYALGIA [None]
  - PAIN IN EXTREMITY [None]
